FAERS Safety Report 12362410 (Version 3)
Quarter: 2016Q2

REPORT INFORMATION
  Report Type: Spontaneous
  Country: US (occurrence: US)
  Receive Date: 20160512
  Receipt Date: 20160621
  Transmission Date: 20160815
  Serious: Yes (Other)
  Sender: FDA-Public Use
  Company Number: US-BAYER-2016-090824

PATIENT
  Age: 36 Year
  Sex: Female

DRUGS (1)
  1. MIRENA [Suspect]
     Active Substance: LEVONORGESTREL
     Indication: CONTRACEPTION
     Dosage: 20 MCG/24HR, CONT
     Route: 015
     Dates: start: 2011, end: 20160502

REACTIONS (5)
  - Vaginal haemorrhage [None]
  - Activities of daily living impaired [None]
  - Post procedural haemorrhage [Not Recovered/Not Resolved]
  - Procedural pain [None]
  - Feeling abnormal [None]

NARRATIVE: CASE EVENT DATE: 201605
